FAERS Safety Report 8173226-1 (Version None)
Quarter: 2012Q1

REPORT INFORMATION
  Report Type: 
  Country: None (occurrence: None)
  Receive Date: 20120104
  Receipt Date: 20111201
  Transmission Date: 20120608
  Serious: No
  Sender: FDA-Public Use
  Company Number: 2011HGS-002757

PATIENT
  Age: 58 Year
  Sex: Female
  Weight: 81.6475 kg

DRUGS (12)
  1. PREDNISONE [Concomitant]
  2. KLONOPIN [Concomitant]
  3. BENLYSTA [Suspect]
     Indication: SYSTEMIC LUPUS ERYTHEMATOSUS
     Dosage: 1 IN 28 D, INTRAVENOUS DRIP
     Route: 041
     Dates: start: 20110801
  4. IMURAN [Concomitant]
  5. ADVIL (IBUPROFEN) (IBUPROFEN) [Concomitant]
  6. PLAQUENIL (HYDROXYCHLOROQUINE SULFATE) (HYDROXYCHLOROQUINE SULFATE) [Concomitant]
  7. PREVACID (LANSOPRAZOLE) (LANSOPRAZOLE) [Concomitant]
  8. DIOVAN (CO-DIOVAN) (HYDROCHLOROTHIAZIDE, VALSARTAN) [Concomitant]
  9. PROZAC [Concomitant]
  10. TYLENOL (PARACETAMOL) (PARACETAMOL) [Concomitant]
  11. LAMICTAL [Concomitant]
  12. ALLEGRA (FEXOFENADINE HYDROCHLORIDE) (FEXOFENADINE HYDROCHLORIDE) [Concomitant]

REACTIONS (6)
  - VITAMIN B12 DECREASED [None]
  - BLOOD IRON DECREASED [None]
  - HEADACHE [None]
  - WEIGHT INCREASED [None]
  - BLOOD CALCIUM INCREASED [None]
  - BLOOD POTASSIUM INCREASED [None]
